FAERS Safety Report 19816418 (Version 1)
Quarter: 2021Q3

REPORT INFORMATION
  Report Type: Spontaneous
  Country: SE (occurrence: SE)
  Receive Date: 20210909
  Receipt Date: 20210909
  Transmission Date: 20211014
  Serious: Yes (Hospitalization)
  Sender: FDA-Public Use
  Company Number: SE-CANTON LABORATORIES, LLC-2118225

PATIENT
  Age: 73 Year
  Sex: Male

DRUGS (7)
  1. TROMBYL [Concomitant]
     Active Substance: ASPIRIN
     Dates: start: 20210722
  2. NITROLINGUAL PUMPSPRAY [Concomitant]
     Active Substance: NITROGLYCERIN
  3. ROSUVASTATIN. [Suspect]
     Active Substance: ROSUVASTATIN
     Dates: end: 202107
  4. NAPROSYN [Suspect]
     Active Substance: NAPROXEN
     Indication: PRODUCT USED FOR UNKNOWN INDICATION
     Route: 065
     Dates: end: 202107
  5. EZETIMIBE. [Concomitant]
     Active Substance: EZETIMIBE
     Dates: start: 20210530
  6. RAMIPRIL. [Concomitant]
     Active Substance: RAMIPRIL
     Dates: end: 202107
  7. SILDENAFIL. [Concomitant]
     Active Substance: SILDENAFIL

REACTIONS (3)
  - Rhabdomyolysis [Unknown]
  - Gastric ulcer haemorrhage [Unknown]
  - Acute kidney injury [Unknown]

NARRATIVE: CASE EVENT DATE: 20210710
